FAERS Safety Report 6388939-1 (Version None)
Quarter: 2009Q4

REPORT INFORMATION
  Report Type: 
  Country: None (occurrence: None)
  Receive Date: 20091001
  Receipt Date: 20090922
  Transmission Date: 20100525
  Serious: Yes (Life-Threatening, Hospitalization, Other)
  Sender: FDA-Public Use
  Company Number: ADR29612009

PATIENT
  Age: 74 Year
  Sex: Female

DRUGS (6)
  1. RAMIPRIL [Suspect]
     Dosage: 2.5 MG, 1/1 DAYS, ORAL
     Route: 048
     Dates: start: 20060601, end: 20061006
  2. ALLOPURINOL [Concomitant]
  3. ARTHROTIC [Concomitant]
  4. BISOPROLOL [Concomitant]
  5. NIFEDIPINE [Concomitant]
  6. TEMAZEPAM [Concomitant]

REACTIONS (2)
  - ANAPHYLACTIC REACTION [None]
  - FEAR [None]
